FAERS Safety Report 5296517-0 (Version None)
Quarter: 2007Q2

REPORT INFORMATION
  Report Type: 
  Country: None (occurrence: None)
  Receive Date: 20070413
  Receipt Date: 20070403
  Transmission Date: 20071010
  Serious: Yes (Other)
  Sender: FDA-Public Use
  Company Number: US-ROCHE-490988

PATIENT
  Age: 50 Year
  Sex: Female
  Weight: 79.4 kg

DRUGS (2)
  1. ACCUTANE [Suspect]
     Route: 048
     Dates: start: 19990615
  2. CHEMOTHERAPY [Suspect]
     Indication: BREAST CANCER
     Route: 065

REACTIONS (2)
  - BREAST CANCER [None]
  - WEIGHT INCREASED [None]
